FAERS Safety Report 8202131 (Version 7)
Quarter: 2013Q4

REPORT INFORMATION
  Report Type: Spontaneous
  Country: US (occurrence: US)
  Receive Date: 20111027
  Receipt Date: 20131118
  Transmission Date: 20140711
  Serious: Yes (Hospitalization, Other)
  Sender: FDA-Public Use
  Company Number: US-BAYER-2011-099499

PATIENT
  Age: 17 Year
  Sex: Female
  Weight: 54 kg

DRUGS (11)
  1. YASMIN [Suspect]
     Indication: MENSTRUATION IRREGULAR
     Dosage: UNK
     Dates: start: 200907, end: 2009
  2. YAZ [Suspect]
     Dosage: UNK
     Dates: start: 200907
  3. ORAL CONTRACEPTIVE NOS [Concomitant]
  4. LORTAB [Concomitant]
     Indication: PAIN
     Dosage: 5-500 MG TWICE DAILY
     Route: 048
     Dates: start: 20090721
  5. MAXALT [Concomitant]
     Indication: HEADACHE
     Dosage: 10 MG, PRN
     Route: 048
     Dates: start: 20090721
  6. PHENERGAN [Concomitant]
     Indication: NAUSEA
     Dosage: 25 MG, PRN
     Route: 048
     Dates: start: 20090721
  7. ZOMIG [Concomitant]
  8. BACTRIM DS [Concomitant]
     Indication: URINARY TRACT INFECTION
     Dosage: 1 TABLET, BID
     Route: 048
  9. TORADOL [Concomitant]
     Dosage: 1 TABLET, QID
     Route: 048
  10. PHENAZOPYRIDINE HYDROCHLORIDE [Concomitant]
     Dosage: 200 MG, UNK
     Route: 048
  11. SOMA [Concomitant]
     Dosage: UNK UNK, PRN

REACTIONS (12)
  - Deep vein thrombosis [None]
  - Renal vein thrombosis [Recovered/Resolved]
  - Injury [None]
  - Pain [None]
  - Gallbladder disorder [None]
  - Pulmonary embolism [None]
  - Myocardial infarction [None]
  - Cerebrovascular accident [None]
  - Emotional distress [None]
  - Anxiety [None]
  - Anhedonia [None]
  - Fear of disease [None]
